FAERS Safety Report 7118703 (Version 6)
Quarter: 2015Q1

REPORT INFORMATION
  Report Type: Report from Study
  Country: JP (occurrence: JP)
  Receive Date: 20090918
  Receipt Date: 20150123
  Transmission Date: 20150721
  Serious: Yes (Hospitalization, Other)
  Sender: FDA-Public Use
  Company Number: PHHO2009JP08419

PATIENT
  Age: 51 Year
  Sex: Male
  Weight: 65 kg

DRUGS (13)
  1. HERBAL NOS [Concomitant]
     Active Substance: HERBALS
  2. NOVORAPID [Concomitant]
     Active Substance: INSULIN ASPART
  3. PANALDINE [Concomitant]
     Active Substance: TICLOPIDINE HYDROCHLORIDE
  4. MICARDIS [Suspect]
     Active Substance: TELMISARTAN
  5. LASIX [Concomitant]
     Active Substance: FUROSEMIDE
  6. BAYASPIRIN [Concomitant]
     Active Substance: ASPIRIN
  7. MYSLEE [Concomitant]
     Active Substance: ZOLPIDEM TARTRATE
  8. CLOMIPRAMINE HYDROCHLORIDE. [Concomitant]
     Active Substance: CLOMIPRAMINE HYDROCHLORIDE
  9. KINEDAK [Concomitant]
     Active Substance: EPALRESTAT
  10. ALISKIREN [Suspect]
     Active Substance: ALISKIREN
     Indication: CARDIOVASCULAR DISORDER
     Route: 048
     Dates: start: 20081205, end: 20090708
  11. ZETIA [Concomitant]
     Active Substance: EZETIMIBE
  12. CRESTOR [Concomitant]
     Active Substance: ROSUVASTATIN CALCIUM
  13. FAMOTIDINE. [Concomitant]
     Active Substance: FAMOTIDINE

REACTIONS (10)
  - Malaise [Recovered/Resolved]
  - Renal impairment [Recovered/Resolved]
  - Hyperkalaemia [Recovered/Resolved]
  - Muscle spasms [Recovered/Resolved]
  - Vomiting [Recovered/Resolved]
  - Hyperglycaemia [Recovered/Resolved]
  - Headache [Recovered/Resolved]
  - Nausea [Recovered/Resolved]
  - Dizziness [Recovered/Resolved]
  - Dehydration [Recovered/Resolved]

NARRATIVE: CASE EVENT DATE: 20090627
